FAERS Safety Report 4953722-8 (Version None)
Quarter: 2006Q1

REPORT INFORMATION
  Report Type: 
  Country: None (occurrence: None)
  Receive Date: 20060323
  Receipt Date: 20060323
  Transmission Date: 20060701
  Serious: Yes (Other)
  Sender: FDA-Public Use
  Company Number: None

PATIENT
  Sex: Female
  Weight: 56.246 kg

DRUGS (2)
  1. KETEK [Suspect]
     Indication: BRONCHITIS
     Dosage: 400 2 TABLETS ONCE DAILY PO
     Route: 048
     Dates: start: 20060210, end: 20060220
  2. BENICAR [Concomitant]

REACTIONS (3)
  - BLISTER [None]
  - PHOTODERMATOSIS [None]
  - SWELLING FACE [None]
